FAERS Safety Report 10189551 (Version 1)
Quarter: 2014Q2

REPORT INFORMATION
  Report Type: Spontaneous
  Country: US (occurrence: US)
  Receive Date: 20140522
  Receipt Date: 20140522
  Transmission Date: 20141212
  Serious: No
  Sender: FDA-Public Use
  Company Number: US-PFIZER INC-2014139331

PATIENT
  Age: 54 Year
  Sex: Male
  Weight: 81.63 kg

DRUGS (4)
  1. CHANTIX [Suspect]
     Indication: SMOKING CESSATION THERAPY
     Dosage: UNK
     Dates: start: 2014, end: 2014
  2. SERTRALINE [Concomitant]
     Indication: DEPRESSION
     Dosage: 200 MG, DAILY
     Route: 048
  3. LORAZEPAM [Concomitant]
     Dosage: 10 MG, DAILY
     Route: 048
  4. OXYCODONE [Concomitant]
     Dosage: UNK

REACTIONS (1)
  - Tobacco user [Unknown]
